FAERS Safety Report 9462150 (Version 3)
Quarter: 2013Q3

REPORT INFORMATION
  Report Type: Spontaneous
  Country: US (occurrence: None)
  Receive Date: 20130813
  Receipt Date: 20130926
  Transmission Date: 20140515
  Serious: Yes (Hospitalization, Other)
  Sender: FDA-Public Use
  Company Number: ADR-2013-01351

PATIENT
  Sex: Female

DRUGS (2)
  1. BACLOFEN [Suspect]
     Indication: PAIN
     Dosage: 240.27MCG/DAY
  2. HYDROMORPHONE [Suspect]
     Indication: PAIN
     Dosage: .30034MG/DAY

REACTIONS (6)
  - Implant site extravasation [None]
  - Cerebrospinal fluid leakage [None]
  - Headache [None]
  - Pain [None]
  - Device dislocation [None]
  - Device breakage [None]
